FAERS Safety Report 13565142 (Version 3)
Quarter: 2017Q3

REPORT INFORMATION
  Report Type: Spontaneous
  Country: US (occurrence: US)
  Receive Date: 20170519
  Receipt Date: 20170829
  Transmission Date: 20171127
  Serious: Yes (Hospitalization, Other)
  Sender: FDA-Public Use
  Company Number: PHEH2017US015085

PATIENT
  Age: 51 Year
  Sex: Male
  Weight: 68.27 kg

DRUGS (10)
  1. LOSARTAN POTASSIUM. [Concomitant]
     Active Substance: LOSARTAN POTASSIUM
     Indication: PRODUCT USED FOR UNKNOWN INDICATION
     Dosage: UNK UNK, QD
     Route: 048
  2. TRIAMCINOLONE ACETONIDE. [Concomitant]
     Active Substance: TRIAMCINOLONE ACETONIDE
     Indication: PSORIASIS
     Dosage: UNK UNK, PRN
     Route: 061
     Dates: start: 2014
  3. CLOBETASOL PROPIONATE. [Concomitant]
     Active Substance: CLOBETASOL PROPIONATE
     Indication: PSORIASIS
     Dosage: UNK UNK, PRN
     Route: 061
     Dates: start: 2013
  4. ASPIRIN. [Concomitant]
     Active Substance: ASPIRIN
     Indication: PROPHYLAXIS
     Dosage: UNK UNK, QD
     Route: 048
  5. STELARA [Concomitant]
     Active Substance: USTEKINUMAB
     Indication: PSORIASIS
     Dosage: UNK EVERY 12 WEEKS
     Route: 058
     Dates: start: 201701
  6. CLOBETASOL [Concomitant]
     Active Substance: CLOBETASOL
     Indication: PSORIASIS
     Dosage: UNK UNK, PRN
     Route: 061
  7. VITAMIN D [Concomitant]
     Active Substance: CHOLECALCIFEROL
     Indication: PRODUCT USED FOR UNKNOWN INDICATION
     Dosage: UNK UNK, QW
     Route: 048
  8. COSENTYX [Suspect]
     Active Substance: SECUKINUMAB
     Indication: PSORIASIS
     Dosage: 300 MG, UNK
     Route: 058
     Dates: start: 20150216, end: 201611
  9. HYDROCHLOROTHIAZIDE. [Concomitant]
     Active Substance: HYDROCHLOROTHIAZIDE
     Indication: HYPERTENSION
     Dosage: UNK UNK, QD
     Route: 048
  10. TALC [Concomitant]
     Active Substance: TALC
     Indication: PSORIASIS
     Dosage: UNK UNK, PRN
     Route: 061

REACTIONS (11)
  - Sinusitis [Recovered/Resolved with Sequelae]
  - Gingival abscess [Unknown]
  - Respiratory tract infection [Recovered/Resolved with Sequelae]
  - Pyrexia [Recovered/Resolved with Sequelae]
  - Ear infection [Recovered/Resolved with Sequelae]
  - Full blood count increased [Unknown]
  - Upper respiratory tract infection [Recovered/Resolved with Sequelae]
  - Respiratory symptom [Unknown]
  - Ear infection [Unknown]
  - Ear infection [Recovered/Resolved with Sequelae]
  - Ear infection [Recovered/Resolved with Sequelae]

NARRATIVE: CASE EVENT DATE: 20150711
